FAERS Safety Report 11991052 (Version 1)
Quarter: 2016Q1

REPORT INFORMATION
  Report Type: Spontaneous
  Country: NZ (occurrence: NZ)
  Receive Date: 20160202
  Receipt Date: 20160202
  Transmission Date: 20160526
  Serious: Yes (Other)
  Sender: FDA-Public Use
  Company Number: NZ-ROCHE-1677847

PATIENT
  Age: 57 Year
  Sex: Female

DRUGS (3)
  1. METHOTREXATE [Concomitant]
     Active Substance: METHOTREXATE
  2. ACTEMRA [Suspect]
     Active Substance: TOCILIZUMAB
     Indication: RHEUMATOID ARTHRITIS
     Route: 042
     Dates: start: 20150422, end: 20150923
  3. ACTEMRA [Suspect]
     Active Substance: TOCILIZUMAB
     Route: 042
     Dates: start: 20150923

REACTIONS (5)
  - Malignant melanoma in situ [Recovered/Resolved]
  - Conjunctival deposit [Unknown]
  - Neutrophil count decreased [Recovered/Resolved]
  - Eye allergy [Unknown]
  - Dry eye [Unknown]

NARRATIVE: CASE EVENT DATE: 20150923
